FAERS Safety Report 24446400 (Version 2)
Quarter: 2024Q4

REPORT INFORMATION
  Report Type: Spontaneous
  Country: ES (occurrence: ES)
  Receive Date: 20241016
  Receipt Date: 20241019
  Transmission Date: 20250115
  Serious: Yes (Hospitalization, Other)
  Sender: ABBVIE
  Company Number: None

PATIENT
  Age: 57 Year
  Sex: Male
  Weight: 74 kg

DRUGS (10)
  1. CARIPRAZINE [Suspect]
     Active Substance: CARIPRAZINE
     Indication: Bipolar disorder
     Dosage: REAGILA 1,5 MG CAPSULAS DURAS, 28 C?PSULAS
     Route: 048
     Dates: start: 20221116, end: 20230402
  2. OMEGA-3 FATTY ACIDS\VITAMINS [Concomitant]
     Active Substance: OMEGA-3 FATTY ACIDS\VITAMINS
     Indication: Product used for unknown indication
  3. HYDROCHLOROTHIAZIDE [Concomitant]
     Active Substance: HYDROCHLOROTHIAZIDE
     Indication: Product used for unknown indication
  4. SODIUM CHONDROITIN SULFATE [Concomitant]
     Active Substance: SODIUM CHONDROITIN SULFATE
     Indication: Product used for unknown indication
  5. ALLOPURINOL [Suspect]
     Active Substance: ALLOPURINOL
     Indication: Product used for unknown indication
     Dosage: ZYLORIC 300 MG COMPRIMIDOS, 30 COMPRIMIDOS
     Route: 048
     Dates: start: 20120713, end: 20230323
  6. AKINETON [Suspect]
     Active Substance: BIPERIDEN HYDROCHLORIDE
     Indication: Dyskinesia
     Dosage: 2 MG COMPRIMIDOS , 50 COMPRIMIDOS
     Route: 048
     Dates: start: 20150309
  7. VALPROATE SODIUM [Suspect]
     Active Substance: VALPROATE SODIUM
     Indication: Product used for unknown indication
     Dosage: DEPAKINE 500 MG COMPRIMIDOS GASTRORRESISTENTES , 20 COMPRIMIDOS
     Route: 048
     Dates: start: 20140723
  8. ACETAMINOPHEN [Concomitant]
     Active Substance: ACETAMINOPHEN
     Indication: Product used for unknown indication
  9. CLORAZEPATE DIPOTASSIUM [Concomitant]
     Active Substance: CLORAZEPATE DIPOTASSIUM
     Indication: Product used for unknown indication
  10. BRINTELLIX [Suspect]
     Active Substance: VORTIOXETINE HYDROBROMIDE
     Indication: Product used for unknown indication
     Dosage: BRINTELLIX 10 MG COMPRIMIDOS RECUBIERTOS CON PELICULA 28 COMPRIMIDOS
     Route: 048
     Dates: start: 20220107, end: 20230426

REACTIONS (16)
  - Diarrhoea [Recovered/Resolved]
  - Hypercalcaemia [Unknown]
  - Disorientation [Not Recovered/Not Resolved]
  - Hypokalaemia [Recovered/Resolved]
  - Dehydration [Recovered/Resolved]
  - Hypernatraemia [Recovered/Resolved]
  - Generalised tonic-clonic seizure [Recovered/Resolved]
  - Acute kidney injury [Recovered/Resolved]
  - Hypokalaemia [Recovered/Resolved]
  - Hypomagnesaemia [Recovered/Resolved]
  - Weight decreased [Recovering/Resolving]
  - Rectal haemorrhage [Unknown]
  - Cachexia [Recovering/Resolving]
  - Incoherent [Unknown]
  - Dyskinesia [Unknown]
  - Parathyroid hyperplasia [Unknown]

NARRATIVE: CASE EVENT DATE: 20221201
